FAERS Safety Report 7312063-4 (Version None)
Quarter: 2011Q1

REPORT INFORMATION
  Report Type: 
  Country: None (occurrence: None)
  Receive Date: 20110224
  Receipt Date: 20100817
  Transmission Date: 20110831
  Serious: Yes (Other)
  Sender: FDA-Public Use
  Company Number: US-BRISTOL-MYERS SQUIBB COMPANY-15243561

PATIENT
  Sex: Male

DRUGS (1)
  1. TAXOL [Suspect]
     Dosage: 2ND CYCLE ON 10AUG2010

REACTIONS (1)
  - RESPIRATORY ARREST [None]
